FAERS Safety Report 8387688-8 (Version None)
Quarter: 2012Q2

REPORT INFORMATION
  Report Type: 
  Country: None (occurrence: None)
  Receive Date: 20120525
  Receipt Date: 20120521
  Transmission Date: 20120825
  Serious: Yes (Hospitalization, Other)
  Sender: FDA-Public Use
  Company Number: US-TEVA-339403USA

PATIENT
  Age: 8 Year
  Sex: Female

DRUGS (3)
  1. OBETROL [Concomitant]
     Route: 065
  2. RISPERIDONE [Concomitant]
     Route: 065
  3. CLONIDINE [Suspect]
     Dosage: QHS
     Route: 065

REACTIONS (6)
  - MALIGNANT HYPERTENSION [None]
  - DRUG WITHDRAWAL SYNDROME [None]
  - URINE KETONE BODY PRESENT [None]
  - INTESTINAL OBSTRUCTION [None]
  - GRAND MAL CONVULSION [None]
  - VIRAL INFECTION [None]
